FAERS Safety Report 4386877-7 (Version None)
Quarter: 2004Q2

REPORT INFORMATION
  Report Type: 
  Country: None (occurrence: None)
  Receive Date: 20040628
  Receipt Date: 20040628
  Transmission Date: 20050107
  Serious: Yes (Hospitalization)
  Sender: FDA-Public Use
  Company Number: None

PATIENT
  Age: 12 Year
  Sex: Female
  Weight: 37.6486 kg

DRUGS (1)
  1. ACETAMINOPHEN [Suspect]
     Indication: PAIN
     Dosage: 500 MG
     Dates: start: 20040513

REACTIONS (2)
  - FEELING ABNORMAL [None]
  - URTICARIA [None]
